FAERS Safety Report 24133824 (Version 1)
Quarter: 2024Q3

REPORT INFORMATION
  Report Type: Spontaneous
  Country: IT (occurrence: IT)
  Receive Date: 20240724
  Receipt Date: 20240724
  Transmission Date: 20241017
  Serious: Yes (Other)
  Sender: GILEAD
  Company Number: None

PATIENT
  Age: 76 Year
  Sex: Female

DRUGS (14)
  1. TRODELVY [Suspect]
     Active Substance: SACITUZUMAB GOVITECAN-HZIY
     Indication: Breast cancer
     Dosage: 1 DOSAGE FORM
     Route: 042
     Dates: start: 20240101
  2. BISOPROLOL FUMARATE [Concomitant]
     Active Substance: BISOPROLOL FUMARATE
  3. SIMVASTATIN [Concomitant]
     Active Substance: SIMVASTATIN
  4. TACHIPIRINA [Concomitant]
     Active Substance: ACETAMINOPHEN
  5. BUPRENORPHINE [Concomitant]
     Active Substance: BUPRENORPHINE
  6. XANAX [Concomitant]
     Active Substance: ALPRAZOLAM
  7. IMODIUM [Concomitant]
     Active Substance: LOPERAMIDE HYDROCHLORIDE
  8. OMEPRAZOLE [Concomitant]
     Active Substance: OMEPRAZOLE
  9. DEXAMETHASONE [Concomitant]
     Active Substance: DEXAMETHASONE
  10. PARACODIN [DIHYDROCODEINE] [Concomitant]
  11. ZOFRAN [Concomitant]
     Active Substance: ONDANSETRON HYDROCHLORIDE
  12. EUTHYROX [Concomitant]
     Active Substance: LEVOTHYROXINE SODIUM
  13. ACETAMINOPHEN\OXYCODONE HYDROCHLORIDE [Concomitant]
     Active Substance: ACETAMINOPHEN\OXYCODONE HYDROCHLORIDE
  14. METOCLOPRAMIDE HYDROCHLORIDE [Concomitant]
     Active Substance: METOCLOPRAMIDE HYDROCHLORIDE

REACTIONS (1)
  - Pneumonitis [Unknown]

NARRATIVE: CASE EVENT DATE: 20240417
